FAERS Safety Report 8322175-4 (Version None)
Quarter: 2012Q2

REPORT INFORMATION
  Report Type: 
  Country: None (occurrence: None)
  Receive Date: 20120430
  Receipt Date: 20120423
  Transmission Date: 20120825
  Serious: Yes (Life-Threatening, Disabling, Other)
  Sender: FDA-Public Use
  Company Number: US-ROXANE LABORATORIES, INC.-2012-RO-01104RO

PATIENT
  Age: 34 Year
  Sex: Female

DRUGS (3)
  1. QUETIAPINE FUMARATE [Suspect]
  2. CHLORAL HYDRATE [Suspect]
  3. OXYCODONE AND ACETAMINOPHEN [Suspect]

REACTIONS (6)
  - CERVICAL MYELOPATHY [None]
  - AUTONOMIC NERVOUS SYSTEM IMBALANCE [None]
  - SUICIDE ATTEMPT [None]
  - NECROSIS [None]
  - SKIN LESION [None]
  - QUADRIPARESIS [None]
